FAERS Safety Report 4828774-6 (Version None)
Quarter: 2005Q4

REPORT INFORMATION
  Report Type: 
  Country: None (occurrence: None)
  Receive Date: 20051014
  Receipt Date: 20050825
  Transmission Date: 20060501
  Serious: No
  Sender: FDA-Public Use
  Company Number: 2005SP002510

PATIENT
  Age: 58 Year
  Sex: Female
  Weight: 63.5036 kg

DRUGS (4)
  1. LUNESTA [Suspect]
     Dosage: 3 MG;HS;ORAL ; 3 MG;1X;ORAL; 3 MG;1X;ORAL
     Route: 048
     Dates: start: 20050801, end: 20050801
  2. LUNESTA [Suspect]
     Dosage: 3 MG;HS;ORAL ; 3 MG;1X;ORAL; 3 MG;1X;ORAL
     Route: 048
     Dates: start: 20050801, end: 20050801
  3. LUNESTA [Suspect]
     Dosage: 3 MG;HS;ORAL ; 3 MG;1X;ORAL; 3 MG;1X;ORAL
     Route: 048
     Dates: start: 20050801
  4. VICODIN [Concomitant]

REACTIONS (2)
  - DRUG INEFFECTIVE [None]
  - INITIAL INSOMNIA [None]
